FAERS Safety Report 5480272-5 (Version None)
Quarter: 2007Q4

REPORT INFORMATION
  Report Type: 
  Country: None (occurrence: None)
  Receive Date: 20071009
  Receipt Date: 20070928
  Transmission Date: 20080405
  Serious: Yes (Hospitalization)
  Sender: FDA-Public Use
  Company Number: GB-BRISTOL-MYERS SQUIBB COMPANY-12799995

PATIENT
  Age: 63 Year
  Sex: Male

DRUGS (2)
  1. CETUXIMAB [Suspect]
     Indication: COLORECTAL CANCER METASTATIC
     Dosage: MOST RECENT INFUSION ON 06-DEC-04.  PT HAD REC'D 21 INFUSIONS TO DATE.
     Route: 041
     Dates: start: 20040719
  2. IRINOTECAN HCL [Suspect]
     Indication: COLORECTAL CANCER METASTATIC
     Dosage: MOST RECENT INFUSION ON 06-DEC-04.  PT HAD REC'D 11 INFUSIONS TO DATE.
     Route: 042
     Dates: start: 20040719

REACTIONS (1)
  - ATRIAL FIBRILLATION [None]
